FAERS Safety Report 5594869-5 (Version None)
Quarter: 2007Q4

REPORT INFORMATION
  Report Type: 
  Country: None (occurrence: None)
  Receive Date: 20071218
  Receipt Date: 20070418
  Transmission Date: 20080405
  Serious: Yes (Other)
  Sender: FDA-Public Use
  Company Number: 2007031536

PATIENT

DRUGS (2)
  1. BEXTRA [Suspect]
     Indication: ARTHRITIS
     Dosage: 10 MG
     Dates: start: 20041130, end: 20050701
  2. BEXTRA [Suspect]
     Indication: BACK PAIN
     Dosage: 10 MG
     Dates: start: 20041130, end: 20050701

REACTIONS (1)
  - MYOCARDIAL INFARCTION [None]
